FAERS Safety Report 7403123-8 (Version None)
Quarter: 2011Q2

REPORT INFORMATION
  Report Type: 
  Country: None (occurrence: None)
  Receive Date: 20110408
  Receipt Date: 20110404
  Transmission Date: 20111010
  Serious: Yes (Other)
  Sender: FDA-Public Use
  Company Number: BR-PFIZER INC-2007077249

PATIENT
  Age: 60 Year
  Sex: Female
  Weight: 56 kg

DRUGS (9)
  1. ADALAT [Concomitant]
     Indication: HYPERTENSION
     Dosage: UNK
  2. CHAMPIX [Suspect]
     Dosage: UNK
     Route: 048
     Dates: start: 20090101
  3. GLIFAGE XR [Concomitant]
  4. NIMESULIDE [Concomitant]
     Indication: INFECTED SEBACEOUS CYST
     Dosage: UNK
     Dates: start: 20070801, end: 20070901
  5. GALVUS MET [Concomitant]
     Indication: DIABETES MELLITUS
     Dosage: UNK
  6. CHAMPIX [Suspect]
     Dosage: UNK
     Route: 048
     Dates: start: 20080101
  7. CHAMPIX [Suspect]
     Indication: SMOKING CESSATION THERAPY
     Dosage: UNK
     Route: 048
     Dates: start: 20070902
  8. CAPTOPRIL [Concomitant]
     Indication: HYPERTENSION
     Dosage: 25 UNK
  9. DIAMICRON [Concomitant]
     Indication: DIABETES MELLITUS
     Dosage: UNK

REACTIONS (6)
  - ASTHENIA [None]
  - BLOOD PRESSURE INCREASED [None]
  - MALAISE [None]
  - BREAST CANCER [None]
  - FATIGUE [None]
  - NAUSEA [None]
